FAERS Safety Report 8236746-7 (Version None)
Quarter: 2012Q1

REPORT INFORMATION
  Report Type: 
  Country: None (occurrence: None)
  Receive Date: 20120309
  Receipt Date: 20101228
  Transmission Date: 20120608
  Serious: Yes (Other)
  Sender: FDA-Public Use
  Company Number: PHHY2010US17487

PATIENT
  Age: 36 Year
  Sex: Male

DRUGS (14)
  1. ACETAMINOPHEN [Concomitant]
  2. ANDROGEL [Concomitant]
  3. STEROIDS NOS (NO INGREDIENT/SUBSTANCES) [Concomitant]
  4. NEXIUM [Concomitant]
  5. VITAMIN D [Concomitant]
  6. EXTAVIA [Suspect]
     Indication: MULTIPLE SCLEROSIS
     Dosage: 0.25 MG, QOD, SUBCUTANEOUS
     Route: 058
     Dates: start: 20100317
  7. NAPROXEN [Concomitant]
  8. SYNTHROID [Concomitant]
  9. XANAX [Concomitant]
  10. PROVIGIL [Concomitant]
  11. IBUPROFEN (ADVIL) [Concomitant]
  12. ANTIHYPERTENSIVE (NO INGREDIENTS/SUBSTANCES) [Concomitant]
  13. VITAMIN B12 [Concomitant]
  14. FAMPRIDINE (FAMPRIDINE) [Concomitant]

REACTIONS (9)
  - CONSTIPATION [None]
  - ARTHRALGIA [None]
  - HEADACHE [None]
  - FATIGUE [None]
  - INSOMNIA [None]
  - PAIN [None]
  - DIPLOPIA [None]
  - SECONDARY PROGRESSIVE MULTIPLE SCLEROSIS [None]
  - HYPERACUSIS [None]
